FAERS Safety Report 4979815-7 (Version None)
Quarter: 2006Q1

REPORT INFORMATION
  Report Type: 
  Country: None (occurrence: None)
  Receive Date: 20060223
  Receipt Date: 20060126
  Transmission Date: 20060701
  Serious: Yes (Other)
  Sender: FDA-Public Use
  Company Number: US-JNJFOC-20060105767

PATIENT
  Age: 34 Year
  Sex: Male
  Weight: 129.2752 kg

DRUGS (2)
  1. RISPERDAL CONSTA [Suspect]
     Indication: PARANOIA
     Dosage: 50 MG, 1 IN 2 WEEK, INTRAMUSCULAR
     Route: 030
     Dates: start: 20040101
  2. RISPERDAL CONSTA [Suspect]
     Indication: SCHIZOPHRENIA
     Dosage: 50 MG, 1 IN 2 WEEK, INTRAMUSCULAR
     Route: 030
     Dates: start: 20040101

REACTIONS (2)
  - DECREASED ACTIVITY [None]
  - WEIGHT INCREASED [None]
